FAERS Safety Report 21559393 (Version 9)
Quarter: 2025Q1

REPORT INFORMATION
  Report Type: Report from Study
  Country: GB (occurrence: GB)
  Receive Date: 20221107
  Receipt Date: 20250319
  Transmission Date: 20250408
  Serious: Yes (Hospitalization)
  Sender: ROCHE
  Company Number: GB-ROCHE-3204692

PATIENT
  Age: 90 Year
  Sex: Male
  Weight: 61.0 kg

DRUGS (7)
  1. ATEZOLIZUMAB [Suspect]
     Active Substance: ATEZOLIZUMAB
     Indication: Hepatocellular carcinoma
     Route: 042
     Dates: start: 20221006
  2. BEVACIZUMAB [Suspect]
     Active Substance: BEVACIZUMAB
     Indication: Hepatocellular carcinoma
     Route: 065
     Dates: start: 20221006
  3. METFORMIN [Concomitant]
     Active Substance: METFORMIN HYDROCHLORIDE
  4. DOXAZOSIN [Concomitant]
     Active Substance: DOXAZOSIN MESYLATE
  5. LEVOTHYROXINE [Concomitant]
     Active Substance: LEVOTHYROXINE
  6. OMEPRAZOLE [Concomitant]
     Active Substance: OMEPRAZOLE
  7. TELMISARTAN AND HYDROCHLOROTHIAZIDE [Concomitant]
     Active Substance: HYDROCHLOROTHIAZIDE\TELMISARTAN

REACTIONS (7)
  - Somnolence [Not Recovered/Not Resolved]
  - Altered state of consciousness [Not Recovered/Not Resolved]
  - Melaena [Unknown]
  - Nausea [Not Recovered/Not Resolved]
  - Asthenia [Unknown]
  - Vomiting [Unknown]
  - Diarrhoea [Unknown]

NARRATIVE: CASE EVENT DATE: 20221014
